FAERS Safety Report 8003743-6 (Version None)
Quarter: 2011Q4

REPORT INFORMATION
  Report Type: 
  Country: None (occurrence: None)
  Receive Date: 20111222
  Receipt Date: 20111213
  Transmission Date: 20120403
  Serious: Yes (Death)
  Sender: FDA-Public Use
  Company Number: US-AMGEN-USACT2011065123

PATIENT
  Age: 92 Year
  Sex: Male

DRUGS (3)
  1. BLINDED DARBEPOETIN ALFA [Suspect]
     Dosage: UNK UNK, QMO
     Route: 058
     Dates: start: 20100204, end: 20111123
  2. BLINDED DARBEPOETIN ALFA [Suspect]
     Indication: CARDIAC FAILURE
     Dosage: UNK UNK, QMO
     Route: 058
     Dates: start: 20100204, end: 20111123
  3. BLINDED PLACEBO [Suspect]
     Indication: CARDIAC FAILURE
     Dosage: UNK UNK, QMO
     Route: 058
     Dates: start: 20100204, end: 20111123

REACTIONS (4)
  - DEATH [None]
  - RESPIRATORY FAILURE [None]
  - PLEURAL EFFUSION [None]
  - CARDIAC FAILURE [None]
